FAERS Safety Report 5102449-0 (Version None)
Quarter: 2006Q3

REPORT INFORMATION
  Report Type: 
  Country: None (occurrence: None)
  Receive Date: 20060907
  Receipt Date: 20060825
  Transmission Date: 20061208
  Serious: Yes (Hospitalization, Other)
  Sender: FDA-Public Use
  Company Number: 2006104530

PATIENT
  Age: 62 Year
  Sex: Female

DRUGS (1)
  1. NEURONTIN [Suspect]
     Indication: DRUG USE FOR UNKNOWN INDICATION
     Dosage: 1800 MG (600 MG, 3 IN 1 D), ORAL
     Route: 048

REACTIONS (2)
  - DIARRHOEA [None]
  - PYREXIA [None]
